FAERS Safety Report 4594453-6 (Version None)
Quarter: 2005Q1

REPORT INFORMATION
  Report Type: 
  Country: None (occurrence: None)
  Receive Date: 20050301
  Receipt Date: 20040305
  Transmission Date: 20050727
  Serious: No
  Sender: FDA-Public Use
  Company Number: US-GLAXOSMITHKLINE-A0501567A

PATIENT
  Sex: Female

DRUGS (5)
  1. VALTREX [Suspect]
     Route: 048
  2. ST. JOHNS WORT [Suspect]
     Route: 065
  3. VITAMINS [Concomitant]
     Route: 065
  4. SUPPLEMENT [Concomitant]
     Route: 065
  5. VALERIAN ROOT [Concomitant]

REACTIONS (2)
  - DRUG INEFFECTIVE [None]
  - HERPES VIRUS INFECTION [None]
